FAERS Safety Report 14720683 (Version 3)
Quarter: 2018Q2

REPORT INFORMATION
  Report Type: Spontaneous
  Country: IT (occurrence: IT)
  Receive Date: 20180405
  Receipt Date: 20180423
  Transmission Date: 20180711
  Serious: No
  Sender: FDA-Public Use
  Company Number: IT-BRACCO-2018IT01639

PATIENT
  Age: 44 Year
  Sex: Male

DRUGS (1)
  1. SONOVUE [Suspect]
     Active Substance: SULFUR HEXAFLUORIDE
     Indication: ULTRASOUND LIVER
     Dosage: 2.4 ML, SINGLE
     Route: 040
     Dates: start: 20180327, end: 20180327

REACTIONS (3)
  - Urticaria [Recovered/Resolved]
  - Paraesthesia oral [Recovered/Resolved]
  - Rash [Recovered/Resolved]

NARRATIVE: CASE EVENT DATE: 20180327
